FAERS Safety Report 7135753-5 (Version None)
Quarter: 2010Q4

REPORT INFORMATION
  Report Type: 
  Country: None (occurrence: None)
  Receive Date: 20101203
  Receipt Date: 20101125
  Transmission Date: 20110411
  Serious: Yes (Hospitalization, Other)
  Sender: FDA-Public Use
  Company Number: ZA-PFIZER INC-2010157729

PATIENT
  Age: 72 Year
  Sex: Female

DRUGS (1)
  1. CELEBREX [Suspect]
     Dosage: 100 MG, 1X/DAY
     Route: 048

REACTIONS (2)
  - ELECTROCARDIOGRAM T WAVE INVERSION [None]
  - SURGERY [None]
